FAERS Safety Report 19058011 (Version 3)
Quarter: 2021Q2

REPORT INFORMATION
  Report Type: Spontaneous
  Country: JP (occurrence: JP)
  Receive Date: 20210324
  Receipt Date: 20210414
  Transmission Date: 20210717
  Serious: No
  Sender: FDA-Public Use
  Company Number: JP-ASTRAZENECA-2021A166130

PATIENT
  Age: 80 Year
  Sex: Female

DRUGS (1)
  1. FASLODEX [Suspect]
     Active Substance: FULVESTRANT
     Indication: BREAST CANCER FEMALE
     Dosage: DOSE UNKNOWN
     Route: 030

REACTIONS (1)
  - SARS-CoV-2 test negative [Unknown]
